FAERS Safety Report 4270730-3 (Version None)
Quarter: 2004Q1

REPORT INFORMATION
  Report Type: 
  Country: None (occurrence: None)
  Receive Date: 20040113
  Receipt Date: 20040106
  Transmission Date: 20041129
  Serious: Yes (Other)
  Sender: FDA-Public Use
  Company Number: 2003124401

PATIENT
  Age: 70 Year
  Sex: Male

DRUGS (5)
  1. LIPITOR [Suspect]
     Indication: HIGH DENSITY LIPOPROTEIN DECREASED
     Dosage: 20 MG (DAILY), ORAL
     Route: 048
     Dates: end: 20031201
  2. LIPITOR [Suspect]
     Indication: LOW DENSITY LIPOPROTEIN INCREASED
     Dosage: 20 MG (DAILY), ORAL
     Route: 048
     Dates: end: 20031201
  3. NICOTINIC ACID [Suspect]
     Indication: ILL-DEFINED DISORDER
     Dosage: 1 MG (DAILY)
  4. HEPAGRISEVIT FORTE-N TABLET (PYRIDOXINE HYDROCHLORIDE, FOLIC ACID, CYA [Concomitant]
  5. ESCITALOPRAM (ESCITALOPRAM) [Concomitant]

REACTIONS (8)
  - ARTHRITIS [None]
  - ASTHENIA [None]
  - GAIT DISTURBANCE [None]
  - MOTOR DYSFUNCTION [None]
  - MYALGIA [None]
  - MYOGLOBIN BLOOD PRESENT [None]
  - PAIN [None]
  - SPINAL LAMINECTOMY [None]
